FAERS Safety Report 5339013-4 (Version None)
Quarter: 2007Q2

REPORT INFORMATION
  Report Type: 
  Country: None (occurrence: None)
  Receive Date: 20070403
  Receipt Date: 20070131
  Transmission Date: 20071010
  Serious: Yes (Hospitalization)
  Sender: FDA-Public Use
  Company Number: 2007-0011152

PATIENT
  Age: 43 Year
  Sex: Male
  Weight: 66.2252 kg

DRUGS (3)
  1. TRUVADA [Suspect]
     Indication: HIV INFECTION
     Dates: start: 20060101
  2. REYATAZ [Concomitant]
  3. RITONAVIR (RITONAVIR) [Concomitant]

REACTIONS (1)
  - RENAL FAILURE ACUTE [None]
